FAERS Safety Report 9263571 (Version 1)
Quarter: 2013Q2

REPORT INFORMATION
  Report Type: Spontaneous
  Country: US (occurrence: US)
  Receive Date: 20130430
  Receipt Date: 20130430
  Transmission Date: 20140414
  Serious: No
  Sender: FDA-Public Use
  Company Number: US-PFIZER INC-2013129069

PATIENT
  Age: 43 Year
  Sex: Female
  Weight: 95 kg

DRUGS (2)
  1. PRISTIQ [Suspect]
     Indication: ANXIETY
     Dosage: 50 MG, 1X/DAY
     Route: 048
     Dates: start: 20120425, end: 20130423
  2. PRISTIQ [Suspect]
     Indication: DEPRESSION

REACTIONS (5)
  - Blood immunoglobulin G increased [Unknown]
  - Medication residue present [Unknown]
  - Malabsorption [Unknown]
  - Off label use [Unknown]
  - Drug ineffective [Unknown]
